FAERS Safety Report 5932434-8 (Version None)
Quarter: 2008Q4

REPORT INFORMATION
  Report Type: 
  Country: None (occurrence: None)
  Receive Date: 20081027
  Receipt Date: 20081027
  Transmission Date: 20090506
  Serious: Yes (Other)
  Sender: FDA-Public Use
  Company Number: None

PATIENT
  Age: 23 Year
  Sex: Female
  Weight: 61.2356 kg

DRUGS (1)
  1. PRISTIQ [Suspect]
     Indication: BIPOLAR II DISORDER
     Dosage: 50MG ONE DAILY PO
     Route: 048
     Dates: start: 20081017, end: 20081020

REACTIONS (17)
  - ABNORMAL SENSATION IN EYE [None]
  - ACTIVITIES OF DAILY LIVING IMPAIRED [None]
  - CLUMSINESS [None]
  - COMMUNICATION DISORDER [None]
  - COORDINATION ABNORMAL [None]
  - FATIGUE [None]
  - HEADACHE [None]
  - HEART RATE INCREASED [None]
  - HYPERTENSION [None]
  - HYPERTHERMIA [None]
  - INCOHERENT [None]
  - MYOCLONUS [None]
  - NAUSEA [None]
  - SOMNOLENCE [None]
  - TREMOR [None]
  - VISUAL FIELD DEFECT [None]
  - VISUAL IMPAIRMENT [None]
